FAERS Safety Report 6493396 (Version 2)
Quarter: 2013Q2

REPORT INFORMATION
  Report Type: Spontaneous
  Country: US (occurrence: US)
  Receive Date: 20071211
  Receipt Date: 20130614
  Transmission Date: 20140414
  Serious: Yes (Hospitalization, Other)
  Sender: FDA-Public Use
  Company Number: US-AMGEN-KDL218689

PATIENT
  Age: 45 Year
  Sex: Female

DRUGS (2)
  1. ENBREL [Suspect]
     Indication: ANKYLOSING SPONDYLITIS
     Dosage: 25 MG, 2 TIMES/WK
     Route: 058
     Dates: start: 20050105
  2. ZANTAC [Concomitant]
     Dosage: UNK

REACTIONS (15)
  - Dysphonia [Recovered/Resolved]
  - Throat irritation [Recovered/Resolved]
  - Wheezing [Recovered/Resolved]
  - Dyspnoea [Not Recovered/Not Resolved]
  - Paraesthesia oral [Recovered/Resolved]
  - Tongue pruritus [Recovered/Resolved]
  - Swollen tongue [Recovered/Resolved]
  - Pneumonia [Recovered/Resolved]
  - Dysphagia [Recovered/Resolved]
  - Palatal oedema [Recovered/Resolved]
  - Cough [Recovered/Resolved]
  - Blood lactic acid increased [Recovered/Resolved]
  - Tryptase increased [Not Recovered/Not Resolved]
  - Nasopharyngitis [Unknown]
  - Injection site pain [Not Recovered/Not Resolved]
